FAERS Safety Report 18454611 (Version 1)
Quarter: 2020Q4

REPORT INFORMATION
  Report Type: Spontaneous
  Country: FR (occurrence: FR)
  Receive Date: 20201103
  Receipt Date: 20201103
  Transmission Date: 20210114
  Serious: Yes (Hospitalization)
  Sender: FDA-Public Use
  Company Number: FR-SUN PHARMACEUTICAL INDUSTRIES LTD-2020RR-265799

PATIENT
  Age: 23 Year
  Sex: Female
  Weight: 52 kg

DRUGS (3)
  1. FYREMADEL [Suspect]
     Active Substance: GANIRELIX ACETATE
     Indication: CONTROLLED OVARIAN STIMULATION
     Dosage: 1 DOSAGE FORM, DAILY
     Route: 058
     Dates: start: 20200318, end: 20200322
  2. GONAL-F [Suspect]
     Active Substance: FOLLITROPIN
     Indication: CONTROLLED OVARIAN STIMULATION
     Dosage: 150 INTERNATIONAL UNIT, DAILY
     Route: 058
     Dates: start: 20200313, end: 20200321
  3. DECAPEPTYL 0,1 MG, POUDRE ET SOLVANT POUR SOLUTION INJECTABLE (S.C.) [Suspect]
     Active Substance: TRIPTORELIN
     Indication: CONTROLLED OVARIAN STIMULATION
     Dosage: 0.2 MILLIGRAM, UNK
     Route: 058
     Dates: start: 20200322, end: 20200322

REACTIONS (3)
  - Ovarian hyperstimulation syndrome [Recovering/Resolving]
  - Abdominal pain [Recovering/Resolving]
  - Ascites [Recovering/Resolving]

NARRATIVE: CASE EVENT DATE: 20200324
